FAERS Safety Report 19105474 (Version 2)
Quarter: 2021Q2

REPORT INFORMATION
  Report Type: Report from Study
  Country: US (occurrence: US)
  Receive Date: 20210407
  Receipt Date: 20210413
  Transmission Date: 20210717
  Serious: Yes (Hospitalization, Other)
  Sender: FDA-Public Use
  Company Number: US-TAKEDA-US202019917

PATIENT
  Sex: Male

DRUGS (1)
  1. CUVITRU [Suspect]
     Active Substance: HUMAN IMMUNOGLOBULIN G
     Indication: IMMUNODEFICIENCY COMMON VARIABLE
     Route: 065

REACTIONS (10)
  - Neoplasm malignant [Unknown]
  - Vocal cord dysfunction [Unknown]
  - Asthma [Unknown]
  - Tracheal disorder [Unknown]
  - Pneumonia [Unknown]
  - Neck mass [Unknown]
  - Influenza [Unknown]
  - Bronchial disorder [Unknown]
  - Cardiac failure congestive [Unknown]
  - Respiratory failure [Unknown]
